FAERS Safety Report 25206682 (Version 2)
Quarter: 2025Q2

REPORT INFORMATION
  Report Type: Spontaneous
  Country: CA (occurrence: CA)
  Receive Date: 20250417
  Receipt Date: 20250513
  Transmission Date: 20250716
  Serious: Yes (Death)
  Sender: ASTELLAS
  Company Number: CA-PFIZER INC-PV202500042437

PATIENT
  Age: 57 Year
  Sex: Male

DRUGS (1)
  1. PADCEV [Suspect]
     Active Substance: ENFORTUMAB VEDOTIN-EJFV
     Indication: Product used for unknown indication
     Route: 042
     Dates: start: 20250403

REACTIONS (2)
  - Death [Fatal]
  - Heart rate increased [Unknown]

NARRATIVE: CASE EVENT DATE: 20250403
